FAERS Safety Report 14962481 (Version 1)
Quarter: 2018Q2

REPORT INFORMATION
  Report Type: Spontaneous
  Country: US (occurrence: US)
  Receive Date: 20180601
  Receipt Date: 20180601
  Transmission Date: 20180711
  Serious: No
  Sender: FDA-Public Use
  Company Number: US-PFIZER INC-2018222669

PATIENT
  Sex: Male

DRUGS (1)
  1. AZULFIDINE [Suspect]
     Active Substance: SULFASALAZINE
     Dosage: UNK
     Route: 065

REACTIONS (2)
  - Seasonal allergy [Unknown]
  - Drug hypersensitivity [Unknown]
